FAERS Safety Report 5211819-1 (Version None)
Quarter: 2007Q1

REPORT INFORMATION
  Report Type: 
  Country: None (occurrence: None)
  Receive Date: 20070116
  Receipt Date: 20070116
  Transmission Date: 20070707
  Serious: No
  Sender: FDA-Public Use
  Company Number: None

PATIENT
  Sex: Female
  Weight: 83.4619 kg

DRUGS (2)
  1. ESTRADIOL [Suspect]
     Indication: SKIN REACTION
     Dosage: 0.05 ONE Q 7 DAY TOPICAL
     Route: 061
     Dates: start: 20050825
  2. CLOBETASOL PROPIONATE [Concomitant]

REACTIONS (1)
  - APPLICATION SITE RASH [None]
